FAERS Safety Report 24404417 (Version 1)
Quarter: 2024Q4

REPORT INFORMATION
  Report Type: Spontaneous
  Country: US (occurrence: None)
  Receive Date: 20241004
  Receipt Date: 20241004
  Transmission Date: 20250114
  Serious: Yes (Hospitalization)
  Sender: Public
  Company Number: None

PATIENT
  Age: 81 Year
  Sex: Male

DRUGS (1)
  1. DOCETAXEL [Suspect]
     Active Substance: DOCETAXEL
     Indication: Neoplasm malignant
     Dosage: OTHER FREQUENCY : ONCE;?
     Route: 042
     Dates: start: 20240417, end: 20240417

REACTIONS (5)
  - Leukopenia [None]
  - Rash pruritic [None]
  - Neutropenia [None]
  - Skin hyperpigmentation [None]
  - Skin exfoliation [None]

NARRATIVE: CASE EVENT DATE: 20240417
